FAERS Safety Report 16839183 (Version 2)
Quarter: 2019Q3

REPORT INFORMATION
  Report Type: Spontaneous
  Country: PT (occurrence: PT)
  Receive Date: 20190923
  Receipt Date: 20190926
  Transmission Date: 20191005
  Serious: Yes (Hospitalization, Other)
  Sender: FDA-Public Use
  Company Number: PT-MYLANLABS-2019M1087852

PATIENT
  Age: 57 Year
  Sex: Female

DRUGS (9)
  1. VENLAFAXINE [Concomitant]
     Active Substance: VENLAFAXINE HYDROCHLORIDE
     Dosage: UNK
  2. OLANZAPINE. [Concomitant]
     Active Substance: OLANZAPINE
     Dosage: UNK
  3. HYDROXYCARBAMIDE [Concomitant]
     Active Substance: HYDROXYUREA
     Dosage: UNK
  4. ACETYLSALICYLIC ACID [Concomitant]
     Active Substance: ASPIRIN
     Dosage: UNK
  5. TOPIRAMATE. [Concomitant]
     Active Substance: TOPIRAMATE
     Dosage: UNK
  6. DIAZEPAM. [Concomitant]
     Active Substance: DIAZEPAM
     Dosage: UNK
  7. ESCITALOPRAM [Suspect]
     Active Substance: ESCITALOPRAM OXALATE
     Indication: PRODUCT USED FOR UNKNOWN INDICATION
     Dosage: 14 CP DE 20 MG + 27 CP DE 10 MG
     Route: 048
     Dates: start: 20190423, end: 20190423
  8. LORAZEPAM. [Suspect]
     Active Substance: LORAZEPAM
     Indication: PRODUCT USED FOR UNKNOWN INDICATION
     Dosage: 72 CP DE 2.5 MG
     Route: 048
     Dates: start: 20190423, end: 20190423
  9. BUPROPION. [Concomitant]
     Active Substance: BUPROPION
     Dosage: UNK

REACTIONS (4)
  - Somnolence [Recovered/Resolved]
  - Hypotension [Recovered/Resolved]
  - Altered state of consciousness [Recovered/Resolved]
  - Intentional overdose [Recovered/Resolved]

NARRATIVE: CASE EVENT DATE: 20190423
